FAERS Safety Report 9870897 (Version 1)
Quarter: 2014Q1

REPORT INFORMATION
  Report Type: Spontaneous
  Country: US (occurrence: None)
  Receive Date: 20140204
  Receipt Date: 20140204
  Transmission Date: 20141002
  Serious: Yes (Other)
  Sender: FDA-Public Use
  Company Number: None

PATIENT
  Age: 87 Year
  Sex: Female

DRUGS (1)
  1. XELODA [Suspect]
     Dosage: 1 TAB QAM AND 2 TABS QPM  ORAL
     Route: 048
     Dates: start: 20130710

REACTIONS (2)
  - Haemorrhage [None]
  - Excoriation [None]
